FAERS Safety Report 17986100 (Version 1)
Quarter: 2020Q3

REPORT INFORMATION
  Report Type: Spontaneous
  Country: US (occurrence: US)
  Receive Date: 20200707
  Receipt Date: 20200707
  Transmission Date: 20201103
  Serious: No
  Sender: FDA-Public Use
  Company Number: US-BAUSCH-BL-2020-018719

PATIENT
  Age: 74 Year
  Sex: Female

DRUGS (1)
  1. LUMIFY [Suspect]
     Active Substance: BRIMONIDINE TARTRATE
     Indication: OCULAR HYPERAEMIA
     Dosage: 1?1.5 DROPS IN EACH EYE
     Route: 047
     Dates: start: 20200627

REACTIONS (1)
  - Lacrimation increased [Unknown]

NARRATIVE: CASE EVENT DATE: 20200627
